FAERS Safety Report 11318016 (Version 1)
Quarter: 2015Q3

REPORT INFORMATION
  Report Type: Spontaneous
  Country: US (occurrence: US)
  Receive Date: 20150728
  Receipt Date: 20150728
  Transmission Date: 20151125
  Serious: Yes (Other)
  Sender: FDA-Public Use
  Company Number: 2015SP002514

PATIENT
  Sex: Male

DRUGS (2)
  1. THORAZINE [Concomitant]
     Active Substance: CHLORPROMAZINE
  2. LATUDA [Suspect]
     Active Substance: LURASIDONE HYDROCHLORIDE
     Indication: PRODUCT USED FOR UNKNOWN INDICATION
     Route: 048

REACTIONS (2)
  - Agranulocytosis [Unknown]
  - Leukopenia [Unknown]
